FAERS Safety Report 4694726-2 (Version None)
Quarter: 2005Q2

REPORT INFORMATION
  Report Type: 
  Country: None (occurrence: None)
  Receive Date: 20050617
  Receipt Date: 20050613
  Transmission Date: 20051028
  Serious: Yes (Other)
  Sender: FDA-Public Use
  Company Number: 200416152BCC

PATIENT
  Age: 29 Year
  Sex: Male
  Weight: 86.1834 kg

DRUGS (1)
  1. ALEVE [Suspect]
     Indication: NASOPHARYNGITIS
     Dosage: 120/220 MG QD ORAL
     Route: 048
     Dates: start: 20041217, end: 20041218

REACTIONS (4)
  - DRUG INEFFECTIVE [None]
  - DYSPNOEA [None]
  - EXTRASYSTOLES [None]
  - HEART RATE IRREGULAR [None]
